FAERS Safety Report 5086190-9 (Version None)
Quarter: 2006Q3

REPORT INFORMATION
  Report Type: 
  Country: None (occurrence: None)
  Receive Date: 20060818
  Receipt Date: 20060802
  Transmission Date: 20061208
  Serious: Yes (Other)
  Sender: FDA-Public Use
  Company Number: 2006098743

PATIENT
  Age: 74 Year
  Sex: Male

DRUGS (8)
  1. TAHOR (ATORVASTATIN) [Suspect]
     Indication: DRUG USE FOR UNKNOWN INDICATION
     Dates: end: 20050601
  2. AMLODIPINE [Suspect]
     Indication: HYPERTENSION
     Dosage: 5 MG (5 MG , 1 IN 1 D)
     Dates: start: 20050601
  3. COTAREG (HYDROCHLOROTHIAZIDE, VALSARTAN) [Suspect]
     Indication: DRUG USE FOR UNKNOWN INDICATION
     Dates: end: 20050601
  4. ZOCOR [Suspect]
     Indication: DRUG USE FOR UNKNOWN INDICATION
     Dates: start: 20050601
  5. ASPIRIN [Concomitant]
  6. BROMAZEPAM [Concomitant]
  7. ZOLPIDEM TARTRATE [Concomitant]
  8. SOTALOL HYDROCHLORIDE [Concomitant]

REACTIONS (5)
  - ERYTHEMA [None]
  - FEELING HOT [None]
  - HEADACHE [None]
  - PSYCHOSOMATIC DISEASE [None]
  - VERTIGO [None]
